FAERS Safety Report 23399509 (Version 1)
Quarter: 2024Q1

REPORT INFORMATION
  Report Type: Spontaneous
  Country: CA (occurrence: CA)
  Receive Date: 20240113
  Receipt Date: 20240113
  Transmission Date: 20240410
  Serious: Yes (Other)
  Sender: FDA-Public Use
  Company Number: None

PATIENT
  Age: 53 Year
  Sex: Male

DRUGS (6)
  1. ATORVASTATIN [Suspect]
     Active Substance: ATORVASTATIN
     Indication: Product used for unknown indication
     Dosage: 1 EVERY 1 DAYS
  2. MYCOPHENOLATE MOFETIL [Suspect]
     Active Substance: MYCOPHENOLATE MOFETIL
     Indication: Immunosuppression
     Dosage: 1 EVERY 1 DAYS
  3. TACROLIMUS [Suspect]
     Active Substance: TACROLIMUS
     Indication: Product used for unknown indication
     Dosage: 2 EVERY 1 DAYS
  4. ALLOPURINOL [Suspect]
     Active Substance: ALLOPURINOL
     Indication: Product used for unknown indication
     Dosage: 1 EVERY 1 DAYS
  5. ATENOLOL [Suspect]
     Active Substance: ATENOLOL
     Indication: Product used for unknown indication
     Dosage: 2 EVERY 1 DAYS?BP
  6. PREDNISONE [Suspect]
     Active Substance: PREDNISONE
     Indication: Product used for unknown indication
     Dosage: 1 EVERY 1 DAYS

REACTIONS (8)
  - Cytomegalovirus chorioretinitis [Unknown]
  - Retinal disorder [Unknown]
  - Retinal haemorrhage [Unknown]
  - Retinal thickening [Unknown]
  - Retinal vasculitis [Unknown]
  - Vision blurred [Unknown]
  - Visual acuity reduced [Unknown]
  - Vitreous floaters [Unknown]
